FAERS Safety Report 12783223 (Version 1)
Quarter: 2016Q3

REPORT INFORMATION
  Report Type: Spontaneous
  Country: US (occurrence: US)
  Receive Date: 20160927
  Receipt Date: 20160927
  Transmission Date: 20161109
  Serious: Yes (Other)
  Sender: FDA-Public Use
  Company Number: US-BEH-2012031106

PATIENT
  Age: 13 Year
  Sex: Female
  Weight: 68.04 kg

DRUGS (5)
  1. PRIVIGEN [Suspect]
     Active Substance: HUMAN IMMUNOGLOBULIN G
     Indication: IMMUNODEFICIENCY COMMON VARIABLE
     Dosage: 15 ML /HR X 25 MIN THEN, 30 ML/HR X 30 MIN THEN, 50 ML/HR X 20 MIN THEN, 80 ML/HR FOR DURATION
     Route: 042
     Dates: start: 20111222
  2. ALLEGRA [Concomitant]
     Active Substance: FEXOFENADINE HYDROCHLORIDE
  3. ERGOCALCIFEROL. [Concomitant]
     Active Substance: ERGOCALCIFEROL
  4. PRIVIGEN [Suspect]
     Active Substance: HUMAN IMMUNOGLOBULIN G
     Route: 042
  5. CIPRODEX OTIC SUSPENSION [Concomitant]

REACTIONS (2)
  - Erythema multiforme [Recovered/Resolved]
  - Rash erythematous [Recovered/Resolved]

NARRATIVE: CASE EVENT DATE: 20111229
